FAERS Safety Report 10666737 (Version 1)
Quarter: 2014Q4

REPORT INFORMATION
  Report Type: Report from Study
  Country: US (occurrence: US)
  Receive Date: 20141222
  Receipt Date: 20141222
  Transmission Date: 20150529
  Serious: Yes (Other)
  Sender: FDA-Public Use
  Company Number: US-ROCHE-1510536

PATIENT
  Age: 58 Year
  Sex: Female

DRUGS (7)
  1. TAXOTERE [Concomitant]
     Active Substance: DOCETAXEL
  2. IXEMPRA [Concomitant]
     Active Substance: IXABEPILONE
  3. HERCEPTIN [Suspect]
     Active Substance: TRASTUZUMAB
     Indication: BREAST CANCER METASTATIC
     Route: 042
  4. TAXOL [Concomitant]
     Active Substance: PACLITAXEL
  5. GEMZAR [Concomitant]
     Active Substance: GEMCITABINE HYDROCHLORIDE
  6. PERJETA [Suspect]
     Active Substance: PERTUZUMAB
     Indication: BREAST CANCER METASTATIC
     Route: 065
  7. XELODA [Suspect]
     Active Substance: CAPECITABINE
     Indication: BREAST CANCER METASTATIC
     Route: 065

REACTIONS (2)
  - Febrile neutropenia [Unknown]
  - Disease progression [Unknown]
